FAERS Safety Report 8590787-9 (Version None)
Quarter: 2012Q3

REPORT INFORMATION
  Report Type: 
  Country: None (occurrence: None)
  Receive Date: 20120813
  Receipt Date: 20120802
  Transmission Date: 20120928
  Serious: Yes (Other)
  Sender: FDA-Public Use
  Company Number: US-ELI_LILLY_AND_COMPANY-US201206001397

PATIENT
  Sex: Female
  Weight: 39 kg

DRUGS (12)
  1. FORTEO [Suspect]
     Indication: OSTEOPOROSIS
     Dosage: 20 UG, QD
     Route: 058
  2. WELLBUTRIN [Concomitant]
     Dosage: UNK
  3. FORTEO [Suspect]
     Dosage: 20 UG, QD
     Route: 058
  4. SPIRIVA [Concomitant]
     Indication: CHRONIC OBSTRUCTIVE PULMONARY DISEASE
     Dosage: UNK
  5. FORTEO [Suspect]
     Dosage: 20 UG, QD
     Route: 058
     Dates: start: 20120501
  6. CALCIUM [Concomitant]
     Dosage: UNK
  7. FORTEO [Suspect]
     Dosage: 20 UG, QD
     Route: 058
  8. ALEVE [Concomitant]
     Dosage: UNK
  9. FORTEO [Suspect]
     Dosage: 20 UG, QD
     Route: 058
  10. LITHIUM CARBONATE [Concomitant]
     Dosage: UNK
  11. VITAMIN D [Concomitant]
     Dosage: UNK
  12. VITAMIN B COMPLEX CAP [Concomitant]
     Dosage: UNK

REACTIONS (13)
  - EXCORIATION [None]
  - FATIGUE [None]
  - FALL [None]
  - TREMOR [None]
  - GAIT DISTURBANCE [None]
  - DYSPHAGIA [None]
  - SYNCOPE [None]
  - FRACTURE DELAYED UNION [None]
  - WRIST FRACTURE [None]
  - MALAISE [None]
  - PERIORBITAL HAEMATOMA [None]
  - HICCUPS [None]
  - DRUG DOSE OMISSION [None]
